FAERS Safety Report 18469347 (Version 2)
Quarter: 2021Q1

REPORT INFORMATION
  Report Type: Spontaneous
  Country: US (occurrence: US)
  Receive Date: 20201105
  Receipt Date: 20210106
  Transmission Date: 20210419
  Serious: Yes (Hospitalization)
  Sender: FDA-Public Use
  Company Number: US-TEVA-2020-US-1843884

PATIENT
  Age: 44 Year
  Sex: Male

DRUGS (18)
  1. FENTANYL. [Suspect]
     Active Substance: FENTANYL
     Indication: INTRACRANIAL PRESSURE INCREASED
     Route: 065
  2. FENTANYL. [Suspect]
     Active Substance: FENTANYL
     Indication: HYPERCAPNIA
  3. ROCURONIUM [Suspect]
     Active Substance: ROCURONIUM BROMIDE
     Indication: HYPERTENSION
  4. HYPERTONIC SALINE [Suspect]
     Active Substance: SODIUM CHLORIDE
     Indication: HYPERCAPNIA
  5. ROCURONIUM [Suspect]
     Active Substance: ROCURONIUM BROMIDE
     Indication: SEDATION
  6. PENTOBARBITAL. [Suspect]
     Active Substance: PENTOBARBITAL
     Indication: INTRACRANIAL PRESSURE INCREASED
  7. FENTANYL. [Suspect]
     Active Substance: FENTANYL
     Indication: SEDATION
  8. ROCURONIUM [Suspect]
     Active Substance: ROCURONIUM BROMIDE
     Indication: INTRACRANIAL PRESSURE INCREASED
     Route: 065
  9. HEPARIN [Suspect]
     Active Substance: HEPARIN SODIUM
     Indication: CEREBRAL VENOUS SINUS THROMBOSIS
     Dosage: ON POST OPERATIVE DAY 2
     Route: 058
  10. PENTOBARBITAL. [Suspect]
     Active Substance: PENTOBARBITAL
     Indication: MEDICAL INDUCTION OF COMA
     Route: 065
  11. ARGATROBAN. [Suspect]
     Active Substance: ARGATROBAN
     Indication: CEREBRAL VENOUS SINUS THROMBOSIS
     Dosage: DOSE TITRATED TO 1.5?2 X BASELINE PARTIAL THROMBOPLASTIN TIME STARTING AT A REDUCED RATE, 0.5 MCG...
     Route: 065
  12. FENTANYL. [Suspect]
     Active Substance: FENTANYL
     Indication: HYPERTENSION
  13. HYPERTONIC SALINE [Suspect]
     Active Substance: SODIUM CHLORIDE
     Indication: INTRACRANIAL PRESSURE INCREASED
     Route: 050
  14. IVIG [Suspect]
     Active Substance: HUMAN IMMUNOGLOBULIN G
     Indication: HEPARIN-INDUCED THROMBOCYTOPENIA
     Dosage: 1G/KG
     Route: 042
  15. ROCURONIUM [Suspect]
     Active Substance: ROCURONIUM BROMIDE
     Indication: HYPERCAPNIA
  16. HEPARIN [Suspect]
     Active Substance: HEPARIN SODIUM
     Indication: CEREBRAL VENOUS SINUS THROMBOSIS
     Dosage: THRICE DAILY. ON POST OPERATIVE DAY 3
     Route: 058
  17. HYPERTONIC SALINE [Suspect]
     Active Substance: SODIUM CHLORIDE
     Indication: HYPERTENSION
  18. FONDAPARINUX [Suspect]
     Active Substance: FONDAPARINUX
     Indication: CEREBRAL VENOUS SINUS THROMBOSIS
     Dosage: 5 MILLIGRAM DAILY;
     Route: 042

REACTIONS (3)
  - Heparin-induced thrombocytopenia [Recovered/Resolved]
  - Off label use [Unknown]
  - Drug ineffective [Unknown]
